FAERS Safety Report 9963534 (Version 2)
Quarter: 2014Q1

REPORT INFORMATION
  Report Type: Report from Study
  Country: US (occurrence: US)
  Receive Date: 20140305
  Receipt Date: 20140305
  Transmission Date: 20141002
  Serious: No
  Sender: FDA-Public Use
  Company Number: US-ABBVIE-13P-163-1128270-00

PATIENT
  Age: 54 Year
  Sex: Female

DRUGS (10)
  1. HUMIRA [Suspect]
     Indication: RHEUMATOID ARTHRITIS
     Dates: start: 201302
  2. METHOTREXATE [Concomitant]
     Indication: RHEUMATOID ARTHRITIS
  3. WELLBUTRIN [Concomitant]
     Indication: DEPRESSION
  4. WELLBUTRIN [Concomitant]
     Indication: ANXIETY
  5. ZOLOFT [Concomitant]
     Indication: DEPRESSION
  6. ZOLOFT [Concomitant]
     Indication: ANXIETY
  7. LEVOTHYROXINE [Concomitant]
     Indication: BASEDOW^S DISEASE
  8. KLONOPIN [Concomitant]
     Indication: INSOMNIA
     Dosage: 1 TAB/DAY AND 1 1/2 TAB/DAY ON SUNDAY
  9. KLONOPIN [Concomitant]
     Indication: FEELING JITTERY
  10. AMBIEN [Concomitant]
     Indication: INSOMNIA
     Dosage: AT BEDTIME

REACTIONS (5)
  - Arthralgia [Not Recovered/Not Resolved]
  - Device malfunction [Unknown]
  - Drug dose omission [Unknown]
  - Back pain [Not Recovered/Not Resolved]
  - Arthralgia [Not Recovered/Not Resolved]
